FAERS Safety Report 21885025 (Version 1)
Quarter: 2023Q1

REPORT INFORMATION
  Report Type: Report from Study
  Country: US (occurrence: US)
  Receive Date: 20230119
  Receipt Date: 20230119
  Transmission Date: 20230417
  Serious: No
  Sender: FDA-Public Use
  Company Number: US-ABBVIE-4247266

PATIENT
  Age: 69 Year
  Sex: Female

DRUGS (2)
  1. SKYRIZI [Suspect]
     Active Substance: RISANKIZUMAB-RZAA
     Indication: Psoriasis
     Route: 058
     Dates: start: 20220125
  2. SKYRIZI [Suspect]
     Active Substance: RISANKIZUMAB-RZAA
     Indication: Psoriatic arthropathy

REACTIONS (6)
  - Fall [Recovering/Resolving]
  - Bursa injury [Not Recovered/Not Resolved]
  - Diverticulitis [Unknown]
  - Psoriasis [Recovered/Resolved]
  - Feeling abnormal [Unknown]
  - Mobility decreased [Recovering/Resolving]

NARRATIVE: CASE EVENT DATE: 20221121
